FAERS Safety Report 7276041-6 (Version None)
Quarter: 2011Q1

REPORT INFORMATION
  Report Type: 
  Country: None (occurrence: None)
  Receive Date: 20110204
  Receipt Date: 20110201
  Transmission Date: 20110831
  Serious: Yes (Death)
  Sender: FDA-Public Use
  Company Number: B0697761A

PATIENT
  Sex: Female

DRUGS (2)
  1. LAPATINIB [Suspect]
     Indication: METASTATIC SQUAMOUS CELL CARCINOMA
     Dosage: 123750MG CUMULATIVE DOSE
     Route: 048
     Dates: start: 20100928, end: 20110104
  2. DOCETAXEL [Suspect]
     Indication: METASTATIC SQUAMOUS CELL CARCINOMA
     Dosage: 686MG CUMULATIVE DOSE
     Route: 042
     Dates: start: 20100928, end: 20101223

REACTIONS (1)
  - DEATH [None]
